FAERS Safety Report 10787829 (Version 1)
Quarter: 2015Q1

REPORT INFORMATION
  Report Type: Report from Study
  Country: US (occurrence: US)
  Receive Date: 20150212
  Receipt Date: 20150212
  Transmission Date: 20150721
  Serious: Yes (Other)
  Sender: FDA-Public Use
  Company Number: US-ROCHE-1531554

PATIENT

DRUGS (4)
  1. OMBITASVIR [Suspect]
     Active Substance: OMBITASVIR
     Indication: CHRONIC HEPATITIS C
     Route: 048
  2. RITONAVIR. [Suspect]
     Active Substance: RITONAVIR
     Indication: CHRONIC HEPATITIS C
     Route: 048
  3. RIBAVIRIN. [Suspect]
     Active Substance: RIBAVIRIN
     Indication: CHRONIC HEPATITIS C
     Route: 048
  4. ABT-450 [Suspect]
     Active Substance: VERUPREVIR
     Indication: CHRONIC HEPATITIS C
     Route: 048

REACTIONS (4)
  - Blood bilirubin increased [Recovered/Resolved]
  - Blood uric acid increased [Recovered/Resolved]
  - Blood phosphorus decreased [Recovered/Resolved]
  - Blood triglycerides increased [Recovered/Resolved]
